FAERS Safety Report 5456260-1 (Version None)
Quarter: 2007Q3

REPORT INFORMATION
  Report Type: 
  Country: None (occurrence: None)
  Receive Date: 20070918
  Receipt Date: 20061115
  Transmission Date: 20080115
  Serious: No
  Sender: FDA-Public Use
  Company Number: US-ASTRAZENECA-2006UW24505

PATIENT

DRUGS (3)
  1. SEROQUEL [Suspect]
     Route: 048
  2. VYTORIN [Concomitant]
  3. ANTIHYPERTENSIVE MEDICATION [Concomitant]

REACTIONS (5)
  - DISTURBANCE IN ATTENTION [None]
  - FRUSTRATION [None]
  - INITIAL INSOMNIA [None]
  - MEMORY IMPAIRMENT [None]
  - MENTAL IMPAIRMENT [None]
